FAERS Safety Report 23225663 (Version 1)
Quarter: 2023Q4

REPORT INFORMATION
  Report Type: Spontaneous
  Country: CA (occurrence: CA)
  Receive Date: 20231124
  Receipt Date: 20231124
  Transmission Date: 20240110
  Serious: Yes (Hospitalization)
  Sender: FDA-Public Use
  Company Number: CA-ULTRAGENYX PHARMACEUTICAL INC.-CA-UGX-23-01405

PATIENT
  Age: 2 Year
  Sex: Female

DRUGS (9)
  1. DOJOLVI [Suspect]
     Active Substance: TRIHEPTANOIN
     Indication: Very long-chain acyl-coenzyme A dehydrogenase deficiency
     Dosage: 72 MILLILITER, Q6H
     Route: 048
  2. FAT EMULSION NOS [Concomitant]
     Active Substance: EGG PHOSPHOLIPIDS\SAFFLOWER OIL\SOYBEAN OIL
     Indication: Product used for unknown indication
     Dosage: UNK
  3. L-CARNITINE [LEVOCARNITINE TARTRATE] [Concomitant]
     Indication: Product used for unknown indication
     Dosage: UNK
  4. MALTODEXTRIN [Concomitant]
     Active Substance: MALTODEXTRIN
     Indication: Product used for unknown indication
     Dosage: UNK
  5. MEDIUM-CHAIN TRIGLYCERIDES [Concomitant]
     Active Substance: MEDIUM-CHAIN TRIGLYCERIDES
     Indication: Product used for unknown indication
     Dosage: UNK
  6. MINERALS\VITAMINS [Concomitant]
     Active Substance: MINERALS\VITAMINS
     Indication: Product used for unknown indication
     Dosage: UNK
  7. TAURINE [Concomitant]
     Active Substance: TAURINE
     Indication: Product used for unknown indication
     Dosage: UNK
  8. CARBOHYDRATES [Concomitant]
     Active Substance: CARBOHYDRATES
     Indication: Product used for unknown indication
     Dosage: UNK
  9. PROTEIN [Concomitant]
     Active Substance: PROTEIN
     Indication: Product used for unknown indication
     Dosage: UNK

REACTIONS (3)
  - Rhabdomyolysis [Not Recovered/Not Resolved]
  - Vomiting [Not Recovered/Not Resolved]
  - Intentional product misuse [Unknown]
